FAERS Safety Report 25072074 (Version 1)
Quarter: 2025Q1

REPORT INFORMATION
  Report Type: Spontaneous
  Country: CZ (occurrence: CZ)
  Receive Date: 20250313
  Receipt Date: 20250313
  Transmission Date: 20250409
  Serious: Yes (Life-Threatening, Hospitalization, Other)
  Sender: TEVA
  Company Number: None

PATIENT
  Age: 18 Year
  Sex: Female
  Weight: 99 kg

DRUGS (1)
  1. PENICILLIN V [Suspect]
     Active Substance: PENICILLIN V
     Indication: Sinusitis
     Dosage: 1-1-1
     Route: 048
     Dates: start: 20250210, end: 20250210

REACTIONS (4)
  - Localised oedema [Recovered/Resolved]
  - Chest pain [Recovered/Resolved]
  - Urticarial dermatitis [Recovered/Resolved]
  - Breath sounds abnormal [Recovered/Resolved]

NARRATIVE: CASE EVENT DATE: 20250210
